FAERS Safety Report 21283165 (Version 1)
Quarter: 2022Q3

REPORT INFORMATION
  Report Type: Spontaneous
  Country: GB (occurrence: GB)
  Receive Date: 20220901
  Receipt Date: 20220901
  Transmission Date: 20221027
  Serious: Yes (Other)
  Sender: FDA-Public Use
  Company Number: None

PATIENT
  Age: 85 Year
  Sex: Female

DRUGS (1)
  1. ZOLEDRONIC ACID [Suspect]
     Active Substance: ZOLEDRONIC ACID
     Dosage: UNK

REACTIONS (8)
  - Transient ischaemic attack [Unknown]
  - Thrombosis [Unknown]
  - Headache [Not Recovered/Not Resolved]
  - Bleeding varicose vein [Unknown]
  - Disorientation [Unknown]
  - Fatigue [Unknown]
  - Blood pressure decreased [Unknown]
  - Abdominal discomfort [Unknown]

NARRATIVE: CASE EVENT DATE: 20220822
